FAERS Safety Report 21403146 (Version 1)
Quarter: 2022Q3

REPORT INFORMATION
  Report Type: Spontaneous
  Country: US (occurrence: None)
  Receive Date: 20220930
  Receipt Date: 20220930
  Transmission Date: 20221027
  Serious: Yes (Other)
  Sender: FDA-Public Use
  Company Number: None

PATIENT
  Age: 44 Year
  Sex: Female
  Weight: 100.35 kg

DRUGS (1)
  1. INFED [Suspect]
     Active Substance: IRON DEXTRAN
     Indication: Anaemia
     Dosage: OTHER FREQUENCY : ONE TIME DOSE;?
     Route: 042
     Dates: start: 20220927, end: 20220927

REACTIONS (3)
  - Pruritus [None]
  - Dyspnoea [None]
  - Wheezing [None]

NARRATIVE: CASE EVENT DATE: 20220927
